FAERS Safety Report 20558136 (Version 1)
Quarter: 2022Q1

REPORT INFORMATION
  Report Type: Report from Study
  Country: US (occurrence: US)
  Receive Date: 20220307
  Receipt Date: 20220307
  Transmission Date: 20220424
  Serious: Yes (Other)
  Sender: FDA-Public Use
  Company Number: US-UCBSA-2022010416

PATIENT
  Sex: Female

DRUGS (1)
  1. CERTOLIZUMAB PEGOL [Suspect]
     Active Substance: CERTOLIZUMAB PEGOL
     Indication: Crohn^s disease
     Dosage: 400 MILLIGRAM, EV 4 WEEKS
     Dates: start: 202104, end: 202201

REACTIONS (4)
  - Pneumonia viral [Not Recovered/Not Resolved]
  - Bronchitis [Not Recovered/Not Resolved]
  - COVID-19 [Not Recovered/Not Resolved]
  - COVID-19 immunisation [Unknown]
